FAERS Safety Report 4295385-3 (Version None)
Quarter: 2004Q1

REPORT INFORMATION
  Report Type: 
  Country: None (occurrence: None)
  Receive Date: 20040216
  Receipt Date: 20030709
  Transmission Date: 20041129
  Serious: Yes (Other)
  Sender: FDA-Public Use
  Company Number: US-GLAXOSMITHKLINE-A0416050A

PATIENT
  Age: 50 Year
  Sex: Female
  Weight: 88.6 kg

DRUGS (5)
  1. LAMICTAL [Suspect]
     Dosage: 200MG PER DAY
     Route: 048
     Dates: start: 20030603, end: 20030701
  2. MULTI-VITAMIN [Concomitant]
  3. CALCIUM [Concomitant]
  4. VITAMINE E [Concomitant]
  5. VITAMIN C [Concomitant]

REACTIONS (8)
  - BLOOD PRESSURE INCREASED [None]
  - DERMATITIS EXFOLIATIVE [None]
  - FLUSHING [None]
  - HEADACHE [None]
  - INSOMNIA [None]
  - MEDICATION ERROR [None]
  - RASH [None]
  - SOMNOLENCE [None]
